FAERS Safety Report 8113423-4 (Version None)
Quarter: 2012Q1

REPORT INFORMATION
  Report Type: 
  Country: None (occurrence: None)
  Receive Date: 20120203
  Receipt Date: 20120130
  Transmission Date: 20120608
  Serious: Yes (Life-Threatening, Other)
  Sender: FDA-Public Use
  Company Number: NL-ELI_LILLY_AND_COMPANY-NL201201009226

PATIENT
  Age: 63 Year
  Sex: Male

DRUGS (2)
  1. BETA BLOCKING AGENTS [Concomitant]
     Indication: HYPERTENSION
  2. TADALAFIL [Suspect]
     Indication: ERECTILE DYSFUNCTION
     Dosage: 1 DF, UNK

REACTIONS (3)
  - AORTIC DISSECTION [None]
  - HAEMOTHORAX [None]
  - INTENTIONAL DRUG MISUSE [None]
